FAERS Safety Report 24323122 (Version 1)
Quarter: 2024Q3

REPORT INFORMATION
  Report Type: Spontaneous
  Country: US (occurrence: None)
  Receive Date: 20240914
  Receipt Date: 20240914
  Transmission Date: 20241016
  Serious: No
  Sender: Public
  Company Number: None

PATIENT
  Age: 32 Year
  Sex: Male
  Weight: 121.5 kg

DRUGS (1)
  1. MOUNJARO [Suspect]
     Active Substance: TIRZEPATIDE
     Indication: Hyperglycaemia
     Dates: start: 20240802

REACTIONS (5)
  - Allodynia [None]
  - Neuralgia [None]
  - Sciatica [None]
  - Radiation skin injury [None]
  - Physical product label issue [None]

NARRATIVE: CASE EVENT DATE: 20240802
